FAERS Safety Report 16873579 (Version 1)
Quarter: 2019Q4

REPORT INFORMATION
  Report Type: Spontaneous
  Country: CN (occurrence: CN)
  Receive Date: 20191001
  Receipt Date: 20191001
  Transmission Date: 20200122
  Serious: Yes (Death, Hospitalization, Disabling, Other)
  Sender: FDA-Public Use
  Company Number: CN-SCIEGEN PHARMACEUTICALS INC-2019SCILIT00270

PATIENT
  Age: 74 Year
  Sex: Female

DRUGS (2)
  1. ASPIRIN [ACETYLSALICYLIC ACID] [Suspect]
     Active Substance: ASPIRIN
  2. CLOPIDOGREL [Suspect]
     Active Substance: CLOPIDOGREL BISULFATE

REACTIONS (5)
  - Pneumonia [Fatal]
  - Bedridden [Unknown]
  - Paraplegia [Unknown]
  - Spinal cord haemorrhage [Unknown]
  - Respiratory failure [Fatal]
